FAERS Safety Report 23242383 (Version 1)
Quarter: 2023Q4

REPORT INFORMATION
  Report Type: Spontaneous
  Country: ES (occurrence: ES)
  Receive Date: 20231129
  Receipt Date: 20231129
  Transmission Date: 20240110
  Serious: Yes (Death)
  Sender: FDA-Public Use
  Company Number: None

PATIENT
  Age: 61 Year
  Sex: Male

DRUGS (1)
  1. PAXLOVID [Suspect]
     Active Substance: NIRMATRELVIR\RITONAVIR
     Indication: COVID-19
     Dosage: PAXLOVID 150 MG + 100 MG FILM-COATED TABLETS, 3 DF 1X/DAY (FREQ:24 H)
     Route: 048
     Dates: start: 20230815, end: 20230816

REACTIONS (3)
  - Drug ineffective [Fatal]
  - Dysgeusia [Unknown]
  - Off label use [Unknown]

NARRATIVE: CASE EVENT DATE: 20230815
